FAERS Safety Report 7765540-6 (Version None)
Quarter: 2011Q3

REPORT INFORMATION
  Report Type: 
  Country: None (occurrence: None)
  Receive Date: 20110921
  Receipt Date: 20110919
  Transmission Date: 20111222
  Serious: No
  Sender: FDA-Public Use
  Company Number: US-PFIZER INC-2011222956

PATIENT
  Sex: Female

DRUGS (1)
  1. XANAX [Suspect]
     Dosage: 0.25 MG, DAILY

REACTIONS (5)
  - PAIN [None]
  - DRUG WITHDRAWAL SYNDROME [None]
  - PARAESTHESIA [None]
  - MIDDLE INSOMNIA [None]
  - PANIC ATTACK [None]
